FAERS Safety Report 17764638 (Version 2)
Quarter: 2020Q2

REPORT INFORMATION
  Report Type: Report from Study
  Country: FR (occurrence: FR)
  Receive Date: 20200511
  Receipt Date: 20200526
  Transmission Date: 20200714
  Serious: Yes (Other)
  Sender: FDA-Public Use
  Company Number: FR-TEVA-2020-FR-1233923

PATIENT
  Age: 8 Month
  Sex: Female

DRUGS (1)
  1. BUPRENORPHINE. [Suspect]
     Active Substance: BUPRENORPHINE
     Dosage: IT WAS THE PATIENT^S FATHER^S MEDICATION WHICH WAS ACCIDENTLY INGESTED
     Route: 048

REACTIONS (5)
  - Accidental exposure to product by child [Unknown]
  - Toxicity to various agents [Unknown]
  - Somnolence [Recovering/Resolving]
  - Bundle branch block [Unknown]
  - Bradypnoea [Unknown]
